FAERS Safety Report 5483495-4 (Version None)
Quarter: 2007Q4

REPORT INFORMATION
  Report Type: 
  Country: None (occurrence: None)
  Receive Date: 20071012
  Receipt Date: 20070927
  Transmission Date: 20080405
  Serious: Yes (Hospitalization)
  Sender: FDA-Public Use
  Company Number: US-ELI_LILLY_AND_COMPANY-US200709006958

PATIENT
  Sex: Female

DRUGS (15)
  1. FORTEO [Suspect]
     Dosage: UNK, UNK
     Dates: start: 20070401
  2. CYMBALTA [Suspect]
     Dosage: UNK, UNK
     Dates: start: 20070101
  3. MS CONTIN [Concomitant]
  4. NEURONTIN [Concomitant]
     Dosage: 600 MG, UNK
  5. CAPTOPRIL [Concomitant]
     Dosage: 50 MG, UNK
  6. PRILOSEC [Concomitant]
  7. ALDACTONE [Concomitant]
     Dosage: 25 MG, UNK
  8. CALCIUM [Concomitant]
     Dosage: 600 MG, 2/D
  9. VITAMIN D [Concomitant]
     Dosage: 800 MG, UNK
  10. MULTI-VITAMIN [Concomitant]
     Dosage: 162 MG CALCIUM, 400 MG VITAMIN D
  11. ENABLEX                            /01760402/ [Concomitant]
     Indication: BLADDER DISORDER
     Dosage: 1500 MG, DAILY (1/D)
  12. HYDROCHLOROTHIAZIDE [Concomitant]
     Indication: BLOOD PRESSURE
     Dosage: 12.5 MG, DAILY (1/D)
  13. POTASSIUM CHLORIDE [Concomitant]
     Dosage: 10 MEQ, UNK
  14. AMITRIPTYLINE HCL [Concomitant]
     Dosage: 25 MG, UNK
  15. MACRODANTIN [Concomitant]
     Dosage: 50 MG, 4/D

REACTIONS (4)
  - ANKLE FRACTURE [None]
  - CYSTITIS [None]
  - FALL [None]
  - MEMORY IMPAIRMENT [None]
